FAERS Safety Report 9103236 (Version 1)
Quarter: 2013Q1

REPORT INFORMATION
  Report Type: Spontaneous
  Country: US (occurrence: US)
  Receive Date: 20130219
  Receipt Date: 20130219
  Transmission Date: 20140127
  Serious: Yes (Hospitalization)
  Sender: FDA-Public Use
  Company Number: PHEH2013US003922

PATIENT
  Sex: Male

DRUGS (2)
  1. TOBI [Suspect]
     Indication: CYSTIC FIBROSIS
     Dosage: UNK
  2. TOBI [Suspect]
     Dosage: 300 MG, BID
     Dates: start: 20130213

REACTIONS (1)
  - Pseudomonas infection [Recovered/Resolved]
